FAERS Safety Report 4733877-0 (Version None)
Quarter: 2005Q3

REPORT INFORMATION
  Report Type: 
  Country: None (occurrence: None)
  Receive Date: 20050729
  Receipt Date: 20050725
  Transmission Date: 20060218
  Serious: Yes (Hospitalization)
  Sender: FDA-Public Use
  Company Number: 200510303BYL

PATIENT
  Age: 86 Year
  Sex: Female
  Weight: 45.2 kg

DRUGS (15)
  1. ADALAT [Suspect]
     Indication: HYPERTENSION
     Dosage: 20 MG, BID, ORAL
     Route: 048
     Dates: start: 20050528, end: 20050604
  2. CONIEL (BENIFIPINE HYDROCHLORIDE) [Suspect]
     Indication: HYPERTENSION
     Dosage: SEE IMAGE
     Route: 048
     Dates: end: 20050604
  3. CONIEL (BENIFIPINE HYDROCHLORIDE) [Suspect]
     Indication: HYPERTENSION
     Dosage: SEE IMAGE
     Route: 048
     Dates: start: 20050608
  4. CEROCRAL [Concomitant]
  5. ISOSORBIDE MONONITRATE [Concomitant]
  6. ASPIRIN [Concomitant]
  7. KETOPROFEN [Concomitant]
  8. OPALMON [Concomitant]
  9. ISALON [Concomitant]
  10. ADETPHOS [Concomitant]
  11. TAKEPRON [Concomitant]
  12. MERISLON [Concomitant]
  13. JUVELA [Concomitant]
  14. VITAMEDIN CAPSULE [Concomitant]
  15. RISE [Concomitant]

REACTIONS (3)
  - CORNEAL DISORDER [None]
  - MOBILITY DECREASED [None]
  - VISUAL ACUITY REDUCED [None]
